FAERS Safety Report 14068550 (Version 1)
Quarter: 2017Q4

REPORT INFORMATION
  Report Type: Spontaneous
  Country: US (occurrence: US)
  Receive Date: 20171010
  Receipt Date: 20171010
  Transmission Date: 20180321
  Serious: Yes (Other)
  Sender: FDA-Public Use
  Company Number: US-PFIZER INC-2017430641

PATIENT
  Age: 40 Year
  Sex: Male

DRUGS (2)
  1. CHANTIX [Suspect]
     Active Substance: VARENICLINE TARTRATE
     Dosage: 1 MG, 2X/DAY
  2. TIKOSYN [Concomitant]
     Active Substance: DOFETILIDE
     Dosage: UNK

REACTIONS (3)
  - Weight increased [Recovering/Resolving]
  - Palpitations [Unknown]
  - Hot flush [Unknown]
